FAERS Safety Report 9283239 (Version 1)
Quarter: 2013Q2

REPORT INFORMATION
  Report Type: Spontaneous
  Country: US (occurrence: US)
  Receive Date: 20130510
  Receipt Date: 20130510
  Transmission Date: 20140414
  Serious: No
  Sender: FDA-Public Use
  Company Number: US-GLAXOSMITHKLINE-A0991299A

PATIENT
  Age: 60 Year
  Sex: Female

DRUGS (6)
  1. TYKERB [Suspect]
     Indication: PRODUCT USED FOR UNKNOWN INDICATION
     Dosage: 1250MG PER DAY
     Route: 048
  2. BENAZEPRIL [Concomitant]
  3. RANITIDINE [Concomitant]
  4. CALCIUM [Concomitant]
  5. MULTIVITAMIN [Concomitant]
  6. ASPIRIN EC [Concomitant]

REACTIONS (3)
  - Diarrhoea [Unknown]
  - Pruritus [Unknown]
  - Back pain [Unknown]
